FAERS Safety Report 6790379-8 (Version None)
Quarter: 2010Q2

REPORT INFORMATION
  Report Type: 
  Country: None (occurrence: None)
  Receive Date: 20100624
  Receipt Date: 20100614
  Transmission Date: 20101027
  Serious: Yes (Hospitalization)
  Sender: FDA-Public Use
  Company Number: PHHY2010US38686

PATIENT
  Sex: Male
  Weight: 86 kg

DRUGS (2)
  1. EXJADE [Suspect]
     Indication: IRON OVERLOAD
     Dosage: 2000 MG, QD OR 4 TABS IN JUICE
     Route: 048
     Dates: start: 20090616
  2. EXJADE [Suspect]
     Indication: BLOOD DISORDER

REACTIONS (2)
  - CHEST PAIN [None]
  - PYREXIA [None]
